FAERS Safety Report 8845601 (Version 2)
Quarter: 2015Q3

REPORT INFORMATION
  Report Type: Report from Study
  Country: US (occurrence: US)
  Receive Date: 20121017
  Receipt Date: 20150825
  Transmission Date: 20151125
  Serious: Yes (Death, Other)
  Sender: FDA-Public Use
  Company Number: US-ROCHE-1146246

PATIENT
  Age: 33 Year
  Sex: Male
  Weight: 42.45 kg

DRUGS (6)
  1. NUTROPIN [Suspect]
     Active Substance: SOMATROPIN
     Indication: ENDOCRINE DISORDER
     Route: 058
     Dates: start: 19991013
  2. NUTROPIN [Suspect]
     Active Substance: SOMATROPIN
     Indication: BODY HEIGHT BELOW NORMAL
  3. NUTROPIN [Suspect]
     Active Substance: SOMATROPIN
     Indication: GROWTH HORMONE DEFICIENCY
  4. ZOLOFT [Concomitant]
     Active Substance: SERTRALINE HYDROCHLORIDE
     Route: 048
  5. SERTRALINE [Concomitant]
     Active Substance: SERTRALINE HYDROCHLORIDE
  6. NUTROPIN [Suspect]
     Active Substance: SOMATROPIN
     Indication: CONGENITAL ENDOCRINE ANOMALY

REACTIONS (4)
  - Depression [Unknown]
  - Blood cholesterol increased [Unknown]
  - Completed suicide [Fatal]
  - Body fat disorder [Unknown]

NARRATIVE: CASE EVENT DATE: 20000311
